FAERS Safety Report 24366517 (Version 1)
Quarter: 2024Q3

REPORT INFORMATION
  Report Type: Spontaneous
  Country: US (occurrence: None)
  Receive Date: 20240926
  Receipt Date: 20240926
  Transmission Date: 20241016
  Serious: Yes (Life-Threatening, Other)
  Sender: Public
  Company Number: None

PATIENT
  Age: 40 Year
  Sex: Male
  Weight: 94.5 kg

DRUGS (12)
  1. RITUXIMAB [Suspect]
     Active Substance: RITUXIMAB
     Indication: Myasthenia gravis
     Dosage: OTHER FREQUENCY : 8 HOUR INFUSION;?
     Route: 042
     Dates: start: 20240907, end: 20240907
  2. RITUXIMAB [Suspect]
     Active Substance: RITUXIMAB
     Indication: Anti-muscle specific kinase antibody positive
  3. DEVICE [Concomitant]
     Active Substance: DEVICE
  4. MONJAROU [Concomitant]
  5. TESTOSTERONE [Concomitant]
     Active Substance: TESTOSTERONE
  6. LEVOMEFOLIC ACID [Concomitant]
     Active Substance: LEVOMEFOLIC ACID
  7. OMEPRAZOLE [Concomitant]
     Active Substance: OMEPRAZOLE
  8. VITAMINS [Concomitant]
     Active Substance: VITAMINS
  9. MAGNESIUM [Concomitant]
     Active Substance: MAGNESIUM
  10. FISH OIL [Concomitant]
     Active Substance: FISH OIL
  11. OMEGA [Concomitant]
  12. MTHFR [Concomitant]

REACTIONS (6)
  - Infusion related reaction [None]
  - Heart rate increased [None]
  - Tunnel vision [None]
  - Loss of consciousness [None]
  - Seizure [None]
  - Anaphylactic shock [None]

NARRATIVE: CASE EVENT DATE: 20240907
